FAERS Safety Report 5978047-3 (Version None)
Quarter: 2008Q4

REPORT INFORMATION
  Report Type: 
  Country: None (occurrence: None)
  Receive Date: 20081203
  Receipt Date: 20081125
  Transmission Date: 20090506
  Serious: Yes (Life-Threatening)
  Sender: FDA-Public Use
  Company Number: JP-GENENTECH-248354

PATIENT
  Sex: Male

DRUGS (1)
  1. ACTIVASE [Suspect]
     Indication: EMBOLIC STROKE
     Dosage: 20.18 MIU, UNK
     Route: 042
     Dates: start: 20070914, end: 20070914

REACTIONS (1)
  - PANCREATITIS ACUTE [None]
